FAERS Safety Report 15112134 (Version 1)
Quarter: 2018Q3

REPORT INFORMATION
  Report Type: Spontaneous
  Country: US (occurrence: US)
  Receive Date: 20180705
  Receipt Date: 20180705
  Transmission Date: 20181010
  Serious: Yes (Other)
  Sender: FDA-Public Use
  Company Number: US-OTSUKA-2018_018664

PATIENT
  Age: 24 Year
  Sex: Female

DRUGS (2)
  1. REXULTI [Suspect]
     Active Substance: BREXPIPRAZOLE
     Dosage: 2 MG, UNK
     Route: 065
     Dates: start: 201805
  2. REXULTI [Suspect]
     Active Substance: BREXPIPRAZOLE
     Indication: MAJOR DEPRESSION
     Dosage: 1 MG, UNK
     Route: 065
     Dates: start: 201803, end: 201804

REACTIONS (7)
  - Maternal exposure during pregnancy [Unknown]
  - Food craving [Unknown]
  - Hyperphagia [Unknown]
  - Hunger [Unknown]
  - Weight increased [Unknown]
  - Breast discharge [Unknown]
  - Abortion spontaneous [Unknown]

NARRATIVE: CASE EVENT DATE: 2018
